FAERS Safety Report 16111714 (Version 1)
Quarter: 2019Q2

REPORT INFORMATION
  Report Type: Spontaneous
  Country: US (occurrence: US)
  Receive Date: 20190322
  Receipt Date: 20190322
  Transmission Date: 20190711
  Serious: Yes (Hospitalization)
  Sender: FDA-Public Use
  Company Number: None

PATIENT
  Sex: Male

DRUGS (4)
  1. GLEOSTINE [Suspect]
     Active Substance: LOMUSTINE
     Indication: NEOPLASM MALIGNANT
  2. DEXAMETHASON [Concomitant]
     Active Substance: DEXAMETHASONE
  3. HUMALOG [Concomitant]
     Active Substance: INSULIN LISPRO
  4. ONETOUCH REVOLUTION TOPICAL ANESTHETIC [Concomitant]
     Active Substance: BENZOCAINE

REACTIONS (1)
  - Hospitalisation [None]
